FAERS Safety Report 9336920 (Version 1)
Quarter: 2013Q2

REPORT INFORMATION
  Report Type: Spontaneous
  Country: US (occurrence: US)
  Receive Date: 20130607
  Receipt Date: 20130607
  Transmission Date: 20140414
  Serious: Yes (Other)
  Sender: FDA-Public Use
  Company Number: US-PFIZER INC-2013171982

PATIENT
  Sex: Female

DRUGS (5)
  1. NEURONTIN [Suspect]
     Indication: NEUROPATHY PERIPHERAL
     Dosage: 100 MG, 1X/DAY
     Route: 048
     Dates: start: 201302, end: 2013
  2. NEURONTIN [Suspect]
     Dosage: 300 MG, UNK
     Route: 048
     Dates: start: 2013, end: 2013
  3. NEURONTIN [Suspect]
     Dosage: 200 MG, UNK
     Route: 048
     Dates: start: 2013, end: 2013
  4. NEURONTIN [Suspect]
     Dosage: 100 MG, UNK
     Route: 048
     Dates: start: 2013
  5. NEURONTIN [Suspect]
     Dosage: UNK
     Route: 048
     Dates: end: 201303

REACTIONS (8)
  - Neoplasm malignant [Unknown]
  - Musculoskeletal disorder [Unknown]
  - Drug effect incomplete [Unknown]
  - Dizziness [Unknown]
  - Insomnia [Unknown]
  - Nightmare [Unknown]
  - Muscle twitching [Unknown]
  - Gait disturbance [Unknown]
